FAERS Safety Report 19263899 (Version 1)
Quarter: 2021Q2

REPORT INFORMATION
  Report Type: Report from Study
  Country: IT (occurrence: IT)
  Receive Date: 20210517
  Receipt Date: 20210517
  Transmission Date: 20210717
  Serious: Yes (Other)
  Sender: FDA-Public Use
  Company Number: IT-CURIUM-2021000359

PATIENT
  Age: 70 Year
  Sex: Male

DRUGS (1)
  1. SODIUM IODIDE I 131 [Suspect]
     Active Substance: SODIUM IODIDE I-131
     Route: 065
     Dates: start: 199610, end: 199610

REACTIONS (2)
  - Anti-thyroid antibody positive [Unknown]
  - Basedow^s disease [Unknown]

NARRATIVE: CASE EVENT DATE: 199710
